FAERS Safety Report 4937141-6 (Version None)
Quarter: 2006Q1

REPORT INFORMATION
  Report Type: 
  Country: None (occurrence: None)
  Receive Date: 20060302
  Receipt Date: 20060215
  Transmission Date: 20060701
  Serious: Yes (Hospitalization, Other)
  Sender: FDA-Public Use
  Company Number: MAG-2006-0000427

PATIENT
  Age: 67 Year
  Sex: Female

DRUGS (1)
  1. MORPHINE SULFATE [Suspect]
     Indication: CANCER PAIN
     Dosage: ORAL
     Route: 048
     Dates: start: 20040101

REACTIONS (7)
  - ANASTOMOTIC ULCER [None]
  - CANCER PAIN [None]
  - CONSTIPATION [None]
  - GASTROINTESTINAL NECROSIS [None]
  - GASTROINTESTINAL STENOSIS [None]
  - GASTROINTESTINAL STOMA COMPLICATION [None]
  - INTESTINAL ISCHAEMIA [None]
